FAERS Safety Report 8299160-4 (Version None)
Quarter: 2012Q2

REPORT INFORMATION
  Report Type: 
  Country: None (occurrence: None)
  Receive Date: 20120419
  Receipt Date: 20120411
  Transmission Date: 20120825
  Serious: Yes (Hospitalization, Other)
  Sender: FDA-Public Use
  Company Number: PHHY2012US031839

PATIENT
  Age: 73 Year
  Sex: Male

DRUGS (12)
  1. FUROSEMIDE [Concomitant]
     Dosage: 40 MG, BID
  2. ISOSORBIDE DINITRATE [Concomitant]
     Dosage: 10 MG, 3 TIMES DAILY
  3. SIMVASTATIN [Concomitant]
     Dosage: 20 MG, DAILY
  4. INSULIN [Concomitant]
     Route: 058
  5. VALSARTAN [Concomitant]
     Dosage: 160 MG, DAILY
  6. CALCIUM ACETATE [Concomitant]
     Dosage: 667 MG, WITH MEALS
  7. HYDRALAZINE HCL [Concomitant]
     Dosage: 10 MG, 3 TIMES DAILY
  8. DIGOXIN [Suspect]
     Dosage: 0.125 MG, DAILY
  9. DILTIAZEM HCL [Concomitant]
     Dosage: 120 MG, DAILY
  10. SPIRONOLACTONE [Concomitant]
     Dosage: 25 MG, DAILY
  11. AMLODIPINE [Concomitant]
     Dosage: 10 MG, BID
  12. CARVEDILOL [Concomitant]
     Dosage: 25 MG, BID

REACTIONS (20)
  - ASTHENIA [None]
  - DYSPNOEA [None]
  - BUNDLE BRANCH BLOCK LEFT [None]
  - BRADYCARDIA [None]
  - TOXICITY TO VARIOUS AGENTS [None]
  - RESPIRATORY FAILURE [None]
  - UNRESPONSIVE TO STIMULI [None]
  - CARDIAC FAILURE CONGESTIVE [None]
  - SYNCOPE [None]
  - DRUG LEVEL INCREASED [None]
  - PNEUMONIA [None]
  - RENAL FAILURE [None]
  - MENTAL STATUS CHANGES [None]
  - VOCAL CORD PARALYSIS [None]
  - TRACHEAL INJURY [None]
  - COUGH [None]
  - ATRIOVENTRICULAR BLOCK [None]
  - BLOOD POTASSIUM DECREASED [None]
  - VENTRICULAR EXTRASYSTOLES [None]
  - EJECTION FRACTION DECREASED [None]
